FAERS Safety Report 21543052 (Version 1)
Quarter: 2022Q4

REPORT INFORMATION
  Report Type: Spontaneous
  Country: US (occurrence: US)
  Receive Date: 20221102
  Receipt Date: 20221102
  Transmission Date: 20230112
  Serious: No
  Sender: FDA-Public Use
  Company Number: US-SMITH AND NEPHEW, INC-2018SMT00083

PATIENT
  Age: 64 Year
  Sex: Male
  Weight: 88.435 kg

DRUGS (3)
  1. COLLAGENASE SANTYL [Suspect]
     Active Substance: COLLAGENASE CLOSTRIDIUM HISTOLYTICUM
     Indication: Diabetic ulcer
     Dosage: AN INCH SQUARED, 1X/DAY
     Route: 061
     Dates: start: 20180423
  2. GLIPIZIDE [Concomitant]
     Active Substance: GLIPIZIDE
  3. METFORMIN [Concomitant]
     Active Substance: METFORMIN HYDROCHLORIDE

REACTIONS (5)
  - Therapeutic product effect decreased [Not Recovered/Not Resolved]
  - Wound complication [Not Recovered/Not Resolved]
  - Wound secretion [Unknown]
  - Expired product administered [Not Recovered/Not Resolved]
  - Product administration error [Not Recovered/Not Resolved]

NARRATIVE: CASE EVENT DATE: 20180401
